FAERS Safety Report 4600491-7 (Version None)
Quarter: 2005Q1

REPORT INFORMATION
  Report Type: 
  Country: None (occurrence: None)
  Receive Date: 20050304
  Receipt Date: 20050222
  Transmission Date: 20050727
  Serious: Yes (Death)
  Sender: FDA-Public Use
  Company Number: HQWYE494523FEB05

PATIENT
  Age: 94 Year
  Sex: Male

DRUGS (9)
  1. MINOMYCIN (MINOCYCLINE, INJECTION) [Suspect]
     Indication: PNEUMONIA
     Dosage: SEE IMAGE
     Dates: start: 20050207, end: 20050207
  2. MINOMYCIN (MINOCYCLINE, INJECTION) [Suspect]
     Indication: PNEUMONIA
     Dosage: SEE IMAGE
     Dates: start: 20050208, end: 20050212
  3. BISOLVON (BROMHEXINE HYDROCHLORIDE, ) [Suspect]
     Indication: PNEUMONIA
     Dates: start: 20050204, end: 20050217
  4. MAXIPIME [Suspect]
     Indication: PNEUMONIA
     Dosage: 2 G DAILY INTRAVENOUS DRIP
     Route: 041
     Dates: start: 20050204, end: 20050207
  5. LACTEC (CALCIUM CHLORIDE ANHYDROUS/POTASSIUM CHLORIDE/SODIUM CHLORIDE/ [Concomitant]
  6. PRIMPERAN TAB [Concomitant]
  7. KN SOL. 3B (GLUCOSE/POTASSIUM CHLORIDE/SODIUM CHLORIDE/SODIUM LACTATE) [Concomitant]
  8. NEOLAMIN 3B (HYDROXYOCOBALAMIN ACETATE/PYRIDOXAL PHOSPHATE/THIAMINE DI [Concomitant]
  9. HUMULIN R [Concomitant]

REACTIONS (8)
  - ALANINE AMINOTRANSFERASE INCREASED [None]
  - ASPARTATE AMINOTRANSFERASE INCREASED [None]
  - BLOOD CHOLINESTERASE INCREASED [None]
  - CONDITION AGGRAVATED [None]
  - DISEASE PROGRESSION [None]
  - JAUNDICE HEPATOCELLULAR [None]
  - PNEUMONIA [None]
  - RESPIRATORY FAILURE [None]
